FAERS Safety Report 22821552 (Version 6)
Quarter: 2024Q4

REPORT INFORMATION
  Report Type: Spontaneous
  Country: PT (occurrence: PT)
  Receive Date: 20230814
  Receipt Date: 20241120
  Transmission Date: 20250114
  Serious: Yes (Other)
  Sender: MYLAN
  Company Number: PT-MYLANLABS-2023M1075077

PATIENT
  Age: 63 Year
  Sex: Female

DRUGS (3)
  1. ESOMEPRAZOLE [Suspect]
     Active Substance: ESOMEPRAZOLE
     Indication: Gastritis
     Dosage: 40 MILLIGRAM, QD
     Route: 048
  2. ESOMEPRAZOLE [Suspect]
     Active Substance: ESOMEPRAZOLE
     Indication: Hypertension
  3. OLMESARTAN [Concomitant]
     Active Substance: OLMESARTAN
     Indication: Hypertension
     Dosage: UNK
     Route: 065

REACTIONS (3)
  - Lichen planus [Recovered/Resolved]
  - Dermatitis allergic [Recovered/Resolved]
  - Off label use [Recovered/Resolved]
